FAERS Safety Report 18837583 (Version 1)
Quarter: 2021Q1

REPORT INFORMATION
  Report Type: Spontaneous
  Country: US (occurrence: US)
  Receive Date: 20210203
  Receipt Date: 20210203
  Transmission Date: 20210419
  Serious: No
  Sender: FDA-Public Use
  Company Number: US-ALLERGAN-2027052US

PATIENT
  Age: 4 Decade
  Sex: Female

DRUGS (2)
  1. BOTOX [Suspect]
     Active Substance: ONABOTULINUMTOXINA
     Dosage: 10?12 UNITS, SINGLE
     Dates: start: 20200617, end: 20200617
  2. BOTOX [Suspect]
     Active Substance: ONABOTULINUMTOXINA
     Indication: SKIN WRINKLING
     Dosage: 10?12 UNITS, SINGLE
     Dates: start: 20200710, end: 20200710

REACTIONS (2)
  - Wrong technique in product usage process [Unknown]
  - Injection site swelling [Unknown]
